FAERS Safety Report 7515008-7 (Version None)
Quarter: 2011Q2

REPORT INFORMATION
  Report Type: 
  Country: None (occurrence: None)
  Receive Date: 20110601
  Receipt Date: 20110518
  Transmission Date: 20111010
  Serious: Yes (Hospitalization, Other)
  Sender: FDA-Public Use
  Company Number: PHHY2010AR43339

PATIENT
  Sex: Female

DRUGS (1)
  1. ZOLEDRONIC ACID [Suspect]
     Indication: OSTEOPOROSIS
     Dosage: 5 MG
     Route: 042
     Dates: start: 20090301

REACTIONS (6)
  - WRIST FRACTURE [None]
  - ACCIDENT [None]
  - MOBILITY DECREASED [None]
  - ARTHRALGIA [None]
  - PELVIC FRACTURE [None]
  - OEDEMA PERIPHERAL [None]
